FAERS Safety Report 6244600-5 (Version None)
Quarter: 2009Q2

REPORT INFORMATION
  Report Type: 
  Country: None (occurrence: None)
  Receive Date: 20090625
  Receipt Date: 20090619
  Transmission Date: 20091009
  Serious: Yes (Hospitalization)
  Sender: FDA-Public Use
  Company Number: JP-AVENTIS-200911622JP

PATIENT
  Age: 40 Year
  Sex: Female

DRUGS (3)
  1. ALLEGRA [Suspect]
     Route: 048
     Dates: start: 20090422, end: 20090521
  2. CELESTAMINE                        /01221101/ [Concomitant]
  3. IPD [Concomitant]

REACTIONS (2)
  - CHROMATURIA [None]
  - LIVER DISORDER [None]
